FAERS Safety Report 6612678-2 (Version None)
Quarter: 2010Q1

REPORT INFORMATION
  Report Type: 
  Country: None (occurrence: None)
  Receive Date: 20100303
  Receipt Date: 20100222
  Transmission Date: 20100710
  Serious: No
  Sender: FDA-Public Use
  Company Number: US-B.I. PHARMACEUTICALS,INC./RIDGEFIELD-2010-BP-01122BP

PATIENT
  Sex: Female

DRUGS (14)
  1. SPIRIVA [Suspect]
     Indication: DYSPNOEA
     Dosage: 18 MCG
     Dates: start: 20091001
  2. VYTORIN [Concomitant]
  3. ACIPHEX [Concomitant]
  4. CLONAZEPAM [Concomitant]
  5. TRAZODONE HCL [Concomitant]
  6. BUPROPION HCL [Concomitant]
  7. CITALOPRAM HYDROBROMIDE [Concomitant]
  8. AVAPRO [Concomitant]
  9. TRICOR NFE [Concomitant]
  10. SINGULAIR [Concomitant]
  11. VIT D [Concomitant]
  12. VIT E [Concomitant]
  13. VIT B12 [Concomitant]
  14. 1 A DAY VIT [Concomitant]

REACTIONS (2)
  - MUSCLE SPASMS [None]
  - PAIN IN EXTREMITY [None]
